FAERS Safety Report 9593147 (Version 2)
Quarter: 2013Q4

REPORT INFORMATION
  Report Type: Spontaneous
  Country: CA (occurrence: CA)
  Receive Date: 20131004
  Receipt Date: 20131031
  Transmission Date: 20140711
  Serious: Yes (Other)
  Sender: FDA-Public Use
  Company Number: CA-PFIZER INC-2013283290

PATIENT
  Age: 67 Year
  Sex: Female
  Weight: 79.36 kg

DRUGS (8)
  1. CHAMPIX [Suspect]
     Indication: SMOKING CESSATION THERAPY
     Dosage: STARTING KIT
     Dates: start: 201309, end: 201309
  2. LIPITOR [Concomitant]
     Indication: BLOOD CHOLESTEROL
     Dosage: 20 MG, 1X/DAY
  3. ASAPHEN [Concomitant]
     Indication: PROPHYLAXIS
     Dosage: 80 MG, 1X/DAY
  4. CELEXA [Concomitant]
     Indication: ANXIETY
     Dosage: 0.5 TABLET OF 10 MG PER DAY
  5. PANTOLOC [Concomitant]
     Indication: DYSPEPSIA
     Dosage: 40 MG, 1X/DAY
  6. ADVAIR [Concomitant]
     Indication: LUNG DISORDER
     Dosage: 250 MG, 2X/DAY (2 INHALATIONS)
     Route: 055
  7. SPIRIVA [Concomitant]
     Indication: LUNG DISORDER
     Dosage: 18 MG, 1X/DAY (1 INHALATION)
     Route: 055
  8. SALBUTAMOL [Concomitant]
     Indication: LUNG DISORDER
     Dosage: 100 MG, 2X/DAY (2 INHALATIONS)
     Route: 055

REACTIONS (3)
  - Urinary tract infection [Recovered/Resolved]
  - Vulvovaginal burning sensation [Recovered/Resolved]
  - Bladder irritation [Unknown]
